FAERS Safety Report 9254422 (Version 1)
Quarter: 2013Q2

REPORT INFORMATION
  Report Type: Spontaneous
  Country: US (occurrence: US)
  Receive Date: 20130425
  Receipt Date: 20130425
  Transmission Date: 20140414
  Serious: Yes (Other)
  Sender: FDA-Public Use
  Company Number: US-PFIZER INC-2013127601

PATIENT
  Age: 69 Year
  Sex: Female
  Weight: 92.97 kg

DRUGS (5)
  1. ZOLOFT [Suspect]
     Indication: DEPRESSION
     Dosage: 200 MG (TAKING 2 TABLETS OF 100MG), 1X/DAY
     Route: 048
  2. XANAX [Concomitant]
     Indication: ANXIETY
     Dosage: UNK
  3. OXYCODONE [Concomitant]
     Indication: PAIN
     Dosage: UNK
  4. LABETALOL [Concomitant]
     Indication: HYPERTENSION
     Dosage: 200 MG, 2X/DAY
  5. ASPIRIN [Concomitant]
     Dosage: 325 MG, 1X/DAY

REACTIONS (2)
  - Atrial fibrillation [Unknown]
  - Thyroid cancer [Unknown]
